FAERS Safety Report 7617097-8 (Version None)
Quarter: 2011Q3

REPORT INFORMATION
  Report Type: 
  Country: None (occurrence: None)
  Receive Date: 20110718
  Receipt Date: 20110701
  Transmission Date: 20111222
  Serious: Yes (Other)
  Sender: FDA-Public Use
  Company Number: US-BAYER-2011-007510

PATIENT
  Age: 57 Year
  Sex: Male
  Weight: 58 kg

DRUGS (14)
  1. DEXMEDETOMIDINE [Concomitant]
     Dosage: UNK
     Route: 042
     Dates: start: 20040511
  2. PLATELETS [Concomitant]
  3. FRESH FROZEN PLASMA [Concomitant]
  4. TIAZAC [Concomitant]
     Dosage: 240 MG, QD
     Route: 048
  5. HEPARIN [Concomitant]
     Dosage: 27000 U, UNK
     Route: 042
     Dates: start: 20040511, end: 20040511
  6. CEFAZOLIN [Concomitant]
     Dosage: 1000 MG, UNK
     Route: 042
     Dates: start: 20040511
  7. ROCURONIUM BROMIDE [Concomitant]
     Dosage: 90 MG, UNK
     Route: 042
     Dates: start: 20040511
  8. MIDAZOLAM HCL [Concomitant]
     Dosage: 2 MG, UNK
     Route: 042
     Dates: start: 20040511, end: 20040511
  9. GENTAMYCIN SULFATE [Concomitant]
     Dosage: 240 MG, UNK
     Route: 042
     Dates: start: 20040511
  10. METOPROLOL TARTRATE [Concomitant]
     Dosage: 20 MG, UNK
     Route: 042
     Dates: start: 20040511
  11. TRASYLOL [Suspect]
     Indication: AORTIC VALVE REPLACEMENT
     Dosage: 200 ML PUMP PRIME
     Route: 042
     Dates: start: 20040511, end: 20040511
  12. NITROGLYCERIN [Concomitant]
     Dosage: 228 ML, UNK
     Route: 042
     Dates: start: 20040511, end: 20040511
  13. LIDOCAINE [Concomitant]
     Dosage: 100 MG, UNK
     Route: 042
     Dates: start: 20040511
  14. ESMOLOL [Concomitant]
     Dosage: 1540 MG, UNK
     Route: 042
     Dates: start: 20040511

REACTIONS (9)
  - STRESS [None]
  - UNEVALUABLE EVENT [None]
  - FEAR [None]
  - ANXIETY [None]
  - EMOTIONAL DISTRESS [None]
  - RENAL IMPAIRMENT [None]
  - PAIN [None]
  - RENAL FAILURE [None]
  - RENAL INJURY [None]
